FAERS Safety Report 8282329 (Version 7)
Quarter: 2013Q4

REPORT INFORMATION
  Report Type: Spontaneous
  Country: US (occurrence: US)
  Receive Date: 20111209
  Receipt Date: 20131118
  Transmission Date: 20140711
  Serious: Yes (Hospitalization, Other)
  Sender: FDA-Public Use
  Company Number: US-MERCK-1112USA00804

PATIENT
  Sex: Female
  Weight: 82.54 kg

DRUGS (6)
  1. FOSAMAX [Suspect]
     Indication: OSTEOPOROSIS
     Dosage: 70 MG, UNK
     Route: 048
     Dates: start: 20000626, end: 200802
  2. FOSAMAX [Suspect]
     Indication: OSTEOPENIA
  3. FOSAMAX [Suspect]
     Indication: OSTEOPOROSIS
     Dosage: UNK
     Route: 048
     Dates: end: 2008
  4. FOSAMAX [Suspect]
     Indication: OSTEOPENIA
  5. ALENDRONATE SODIUM [Suspect]
     Indication: OSTEOPOROSIS
     Dosage: UNK
     Dates: end: 2008
  6. ALENDRONATE SODIUM [Suspect]
     Indication: OSTEOPENIA

REACTIONS (38)
  - Gait disturbance [Unknown]
  - Stress fracture [Unknown]
  - Foot operation [Unknown]
  - Fracture nonunion [Unknown]
  - Bone metabolism disorder [Unknown]
  - Nephrolithiasis [Unknown]
  - Increased tendency to bruise [Unknown]
  - Haemorrhage [Unknown]
  - Polyarthritis [Unknown]
  - Fracture nonunion [Unknown]
  - Fracture delayed union [Unknown]
  - Synovitis [Not Recovered/Not Resolved]
  - Raynaud^s phenomenon [Unknown]
  - Osteoarthritis [Not Recovered/Not Resolved]
  - Nephrolithiasis [Not Recovered/Not Resolved]
  - Wrist fracture [Unknown]
  - Joint injury [Unknown]
  - Foot operation [Unknown]
  - Hypercholesterolaemia [Unknown]
  - Anaemia [Unknown]
  - Fatigue [Unknown]
  - Photosensitivity reaction [Unknown]
  - Intramedullary rod insertion [Unknown]
  - Open reduction of fracture [Unknown]
  - Intramedullary rod insertion [Unknown]
  - Open reduction of fracture [Unknown]
  - Femur fracture [Unknown]
  - Femur fracture [Unknown]
  - Low turnover osteopathy [Unknown]
  - Stress fracture [Unknown]
  - Stress fracture [Unknown]
  - Stress fracture [Recovering/Resolving]
  - Hypertension [Unknown]
  - Gastric disorder [Unknown]
  - Vitamin D deficiency [Unknown]
  - Neuroma [Unknown]
  - Tendonitis [Unknown]
  - Stress fracture [Unknown]
